FAERS Safety Report 9862724 (Version 1)
Quarter: 2014Q1

REPORT INFORMATION
  Report Type: Spontaneous
  Country: CA (occurrence: None)
  Receive Date: 20140130
  Receipt Date: 20140130
  Transmission Date: 20141002
  Serious: Yes (Other)
  Sender: FDA-Public Use
  Company Number: CA-014509

PATIENT
  Age: 71 Year
  Sex: Male

DRUGS (19)
  1. FIRMAGON /01764801/ (FIRMAGON) 80 MG (NOT SPECIFIED) [Suspect]
     Indication: PROSTATE CANCER
     Route: 058
     Dates: start: 20130708
  2. ROSUVASTATIN [Concomitant]
  3. CALCIUM [Concomitant]
  4. TAMSULOSIN HYDROCHLORIDE [Concomitant]
  5. PANTOPRAZOLE [Concomitant]
  6. TYLENOL [Concomitant]
  7. HYDROCORTISONE [Concomitant]
  8. ASA [Concomitant]
  9. IBUPROFEN [Concomitant]
  10. BEANO [Concomitant]
  11. VG VIT C CAL ASCOR [Concomitant]
  12. MAGNESIUM [Concomitant]
  13. ADDITIVA VITAMIN C [Concomitant]
  14. E VITAMIN [Concomitant]
  15. VITAMIN K2 [Concomitant]
  16. NATURE MADE VITAMIN D3 [Concomitant]
  17. ACIDOPHILUS [Concomitant]
  18. BIFIDUS [Concomitant]
  19. GANODERMA [Concomitant]

REACTIONS (4)
  - Fatigue [None]
  - Prostatic specific antigen increased [None]
  - Bone pain [None]
  - Metastases to bone [None]
